FAERS Safety Report 16049559 (Version 9)
Quarter: 2019Q3

REPORT INFORMATION
  Report Type: Report from Study
  Country: KR (occurrence: KR)
  Receive Date: 20190307
  Receipt Date: 20190822
  Transmission Date: 20191004
  Serious: Yes (Other)
  Sender: FDA-Public Use
  Company Number: KR-009507513-1901KOR005104

PATIENT
  Sex: Female

DRUGS (16)
  1. PEMBROLIZUMAB. [Suspect]
     Active Substance: PEMBROLIZUMAB
     Dosage: QUANTITY 2, DAYS 1
     Dates: start: 20181126, end: 20181127
  2. PEMBROLIZUMAB. [Suspect]
     Active Substance: PEMBROLIZUMAB
     Dosage: UNK
     Dates: start: 20181127, end: 20181128
  3. PEMBROLIZUMAB. [Suspect]
     Active Substance: PEMBROLIZUMAB
     Dosage: QUANTITY 2, DAYS 1
     Dates: start: 20190213, end: 20190214
  4. PEMBROLIZUMAB. [Suspect]
     Active Substance: PEMBROLIZUMAB
     Indication: PALLIATIVE CARE
     Dosage: UNK
     Dates: start: 20180928, end: 20180929
  5. PEMBROLIZUMAB. [Suspect]
     Active Substance: PEMBROLIZUMAB
     Dosage: 0.1 G/4 ML; QUANTITY: 2, DAYS: 1
     Dates: start: 20190710, end: 20190710
  6. PEMBROLIZUMAB. [Suspect]
     Active Substance: PEMBROLIZUMAB
     Dosage: QUANTITY 2, DAYS 1
     Dates: start: 20190327, end: 20190328
  7. PEMBROLIZUMAB. [Suspect]
     Active Substance: PEMBROLIZUMAB
     Dosage: QUANTITY 2, DAYS 1
     Dates: start: 20190619, end: 20190619
  8. PEMBROLIZUMAB. [Suspect]
     Active Substance: PEMBROLIZUMAB
     Dosage: QUANTITY 2, DAYS 1
     Dates: start: 20190508, end: 20190509
  9. PEMBROLIZUMAB. [Suspect]
     Active Substance: PEMBROLIZUMAB
     Dosage: 0.1G/ 4ML; QUANTITY 2, DAYS 1
     Dates: start: 20190529, end: 20190529
  10. PEMBROLIZUMAB. [Suspect]
     Active Substance: PEMBROLIZUMAB
     Indication: CERVIX CANCER METASTATIC
     Dosage: UNK
     Dates: start: 20180903, end: 20180904
  11. PEMBROLIZUMAB. [Suspect]
     Active Substance: PEMBROLIZUMAB
     Dosage: UNK
     Dates: start: 20181106, end: 20181107
  12. PEMBROLIZUMAB. [Suspect]
     Active Substance: PEMBROLIZUMAB
     Dosage: QUANTITY 2, DAYS 1
     Dates: start: 20190417, end: 20190417
  13. PEMBROLIZUMAB. [Suspect]
     Active Substance: PEMBROLIZUMAB
     Dosage: UNK
     Dates: start: 20181019, end: 20181019
  14. PEMBROLIZUMAB. [Suspect]
     Active Substance: PEMBROLIZUMAB
     Dosage: QUANTITY 2, DAYS 1
     Dates: start: 201903, end: 201903
  15. PEMBROLIZUMAB. [Suspect]
     Active Substance: PEMBROLIZUMAB
     Dosage: UNK
     Dates: start: 20190807, end: 20190807
  16. PEMBROLIZUMAB. [Suspect]
     Active Substance: PEMBROLIZUMAB
     Dosage: QUANTITY 2, DAYS 1
     Dates: start: 20190116, end: 20190117

REACTIONS (3)
  - Inappropriate schedule of product administration [Unknown]
  - Ureteral stent insertion [Unknown]
  - Product use in unapproved indication [Unknown]

NARRATIVE: CASE EVENT DATE: 20180903
